FAERS Safety Report 14564386 (Version 3)
Quarter: 2019Q1

REPORT INFORMATION
  Report Type: Spontaneous
  Country: US (occurrence: US)
  Receive Date: 20180222
  Receipt Date: 20190115
  Transmission Date: 20190417
  Serious: Yes (Other)
  Sender: FDA-Public Use
  Company Number: US-REGENERON PHARMACEUTICALS, INC.-2018-14761

PATIENT

DRUGS (2)
  1. EYLEA [Suspect]
     Active Substance: AFLIBERCEPT
     Dosage: LAST PRIOR TO EVENT, OS
     Route: 031
     Dates: start: 20180205, end: 20180205
  2. EYLEA [Suspect]
     Active Substance: AFLIBERCEPT
     Indication: PRODUCT USED FOR UNKNOWN INDICATION
     Dosage: 5 DOSES, OS
     Route: 031

REACTIONS (1)
  - Non-infectious endophthalmitis [Recovered/Resolved]

NARRATIVE: CASE EVENT DATE: 20180205
